FAERS Safety Report 6361961-7 (Version None)
Quarter: 2009Q3

REPORT INFORMATION
  Report Type: 
  Country: None (occurrence: None)
  Receive Date: 20090821
  Receipt Date: 20090713
  Transmission Date: 20100115
  Serious: No
  Sender: FDA-Public Use
  Company Number: 8049021

PATIENT
  Age: 57 Year
  Sex: Male
  Weight: 105.6 kg

DRUGS (12)
  1. CIMZIA [Suspect]
     Indication: CROHN'S DISEASE
     Dosage: 400 MG SC
     Route: 058
     Dates: start: 20090629
  2. HYDROCHLOROTHIAZIDE [Concomitant]
  3. LISINOPRIL [Concomitant]
  4. TRAMADOL HCL [Concomitant]
  5. TERAZOSINE HCL [Concomitant]
  6. OMEPRAZOLE [Concomitant]
  7. VERAPAMIL HCL [Concomitant]
  8. MESALAMINE [Concomitant]
  9. PLAVIX [Concomitant]
  10. VYTORIN [Concomitant]
  11. GABAPENTIN [Concomitant]
  12. LUNESTA [Concomitant]

REACTIONS (1)
  - INJECTION SITE REACTION [None]
